FAERS Safety Report 16947611 (Version 1)
Quarter: 2019Q4

REPORT INFORMATION
  Report Type: Spontaneous
  Country: US (occurrence: US)
  Receive Date: 20191022
  Receipt Date: 20191022
  Transmission Date: 20200122
  Serious: Yes (Hospitalization)
  Sender: FDA-Public Use
  Company Number: US-B.BRAUN MEDICAL INC.-2075936

PATIENT
  Age: 38 Year
  Sex: Female

DRUGS (1)
  1. STERILE WATER [Suspect]
     Active Substance: WATER
     Dates: start: 20191001, end: 20191001

REACTIONS (3)
  - Renal failure [Recovering/Resolving]
  - Dialysis [None]
  - Wrong product administered [Recovering/Resolving]

NARRATIVE: CASE EVENT DATE: 20191001
